FAERS Safety Report 16419217 (Version 2)
Quarter: 2019Q4

REPORT INFORMATION
  Report Type: Spontaneous
  Country: JP (occurrence: JP)
  Receive Date: 20190612
  Receipt Date: 20191203
  Transmission Date: 20200122
  Serious: Yes (Hospitalization)
  Sender: FDA-Public Use
  Company Number: JP-BAYER-2019-109600

PATIENT
  Age: 4 Decade
  Sex: Female

DRUGS (1)
  1. YAZ [Suspect]
     Active Substance: DROSPIRENONE\ETHINYL ESTRADIOL
     Dosage: UNK UNK, QD
     Route: 048
     Dates: start: 20190527, end: 20190601

REACTIONS (2)
  - Hospitalisation [None]
  - Withdrawal bleed [None]
